FAERS Safety Report 5764599-5 (Version None)
Quarter: 2008Q2

REPORT INFORMATION
  Report Type: 
  Country: None (occurrence: None)
  Receive Date: 20080611
  Receipt Date: 20080602
  Transmission Date: 20081010
  Serious: Yes (Hospitalization)
  Sender: FDA-Public Use
  Company Number: GB-BAYER-200811439BNE

PATIENT
  Age: 17 Year
  Sex: Female

DRUGS (1)
  1. CIPROFLOXACIN HCL [Suspect]
     Indication: DRUG USE FOR UNKNOWN INDICATION

REACTIONS (2)
  - BLISTER [None]
  - RASH [None]
